FAERS Safety Report 16038391 (Version 1)
Quarter: 2019Q1

REPORT INFORMATION
  Report Type: Spontaneous
  Country: US (occurrence: US)
  Receive Date: 20190206
  Receipt Date: 20190206
  Transmission Date: 20190418
  Serious: No
  Sender: FDA-Public Use
  Company Number: None

PATIENT
  Age: 53 Year
  Sex: Male

DRUGS (2)
  1. NEVIRAPINE ER TAB 400 MG [Suspect]
     Active Substance: NEVIRAPINE
     Dates: start: 2017
  2. ABACAVIR SULFATE /LAMIVUDINE TAB 600-300MG [Suspect]
     Active Substance: ABACAVIR\LAMIVUDINE
     Dates: start: 2017

REACTIONS (2)
  - Sinusitis [None]
  - Epistaxis [None]

NARRATIVE: CASE EVENT DATE: 20190114
